FAERS Safety Report 5139673-7 (Version None)
Quarter: 2006Q4

REPORT INFORMATION
  Report Type: 
  Country: None (occurrence: None)
  Receive Date: 20061024
  Receipt Date: 20061011
  Transmission Date: 20070319
  Serious: Yes (Other)
  Sender: FDA-Public Use
  Company Number: 2006SP004193

PATIENT

DRUGS (1)
  1. PEGETRON (PEGINTERFERON ALFA-2B W/ RIBAVIRIN) [Suspect]
     Indication: HEPATITIS C
     Dates: end: 20060630

REACTIONS (1)
  - ENDOCARDITIS [None]
